FAERS Safety Report 4730670-X (Version None)
Quarter: 2005Q3

REPORT INFORMATION
  Report Type: 
  Country: None (occurrence: None)
  Receive Date: 20050725
  Receipt Date: 20050302
  Transmission Date: 20060218
  Serious: No
  Sender: FDA-Public Use
  Company Number: USA050392203

PATIENT
  Age: 6 Year
  Sex: Male
  Weight: 24 kg

DRUGS (1)
  1. STRATTERA [Suspect]
     Indication: ATTENTION DEFICIT/HYPERACTIVITY DISORDER
     Dosage: 18 MG
     Dates: start: 20050224

REACTIONS (2)
  - ABDOMINAL PAIN UPPER [None]
  - PAIN [None]
